FAERS Safety Report 15065886 (Version 1)
Quarter: 2018Q2

REPORT INFORMATION
  Report Type: Spontaneous
  Country: US (occurrence: US)
  Receive Date: 20180605
  Receipt Date: 20180605
  Transmission Date: 20180711
  Serious: No
  Sender: FDA-Public Use
  Company Number: None

PATIENT
  Age: 40 Year
  Sex: Male

DRUGS (1)
  1. VANCOMYCIN 10 GM AND 1 GM FRESENIUS KABI [Suspect]
     Active Substance: VANCOMYCIN
     Indication: OSTEOMYELITIS
     Route: 042
     Dates: start: 20180526, end: 20180602

REACTIONS (3)
  - Ear congestion [None]
  - Hyperaesthesia [None]
  - Malaise [None]

NARRATIVE: CASE EVENT DATE: 20180602
